FAERS Safety Report 7732550-4 (Version None)
Quarter: 2011Q3

REPORT INFORMATION
  Report Type: 
  Country: None (occurrence: None)
  Receive Date: 20110906
  Receipt Date: 20110824
  Transmission Date: 20111222
  Serious: Yes (Other)
  Sender: FDA-Public Use
  Company Number: FR-GENENTECH-323494

PATIENT
  Sex: Female

DRUGS (1)
  1. XOLAIR [Suspect]
     Indication: ASTHMA
     Dosage: 1 DF, 1/MONTH
     Route: 042

REACTIONS (3)
  - MOTOR DYSFUNCTION [None]
  - PARAESTHESIA [None]
  - HYPOAESTHESIA [None]
